FAERS Safety Report 15700358 (Version 3)
Quarter: 2020Q2

REPORT INFORMATION
  Report Type: Spontaneous
  Country: US (occurrence: US)
  Receive Date: 20181207
  Receipt Date: 20200417
  Transmission Date: 20200713
  Serious: Yes (Death, Other)
  Sender: FDA-Public Use
  Company Number: US-ASTRAZENECA-2018SF57958

PATIENT
  Age: 54 Year
  Sex: Male

DRUGS (9)
  1. LISINOPRIL. [Concomitant]
     Active Substance: LISINOPRIL
     Indication: BLOOD PRESSURE MEASUREMENT
     Dates: end: 2018
  2. AMLODIPINE [Concomitant]
     Active Substance: AMLODIPINE BESYLATE
     Indication: BLOOD PRESSURE MEASUREMENT
     Dates: end: 2018
  3. PRILOSEC OTC [Suspect]
     Active Substance: OMEPRAZOLE MAGNESIUM
     Indication: GASTROOESOPHAGEAL REFLUX DISEASE
     Dosage: 20 MG
     Route: 048
     Dates: start: 200501, end: 201607
  4. CARVEDILOL. [Concomitant]
     Active Substance: CARVEDILOL
     Indication: BLOOD PRESSURE MEASUREMENT
     Dates: end: 2018
  5. ATORVASTATIN [Concomitant]
     Active Substance: ATORVASTATIN
     Indication: BLOOD CHOLESTEROL
     Dates: end: 2018
  6. GLIMEPIRIDE. [Concomitant]
     Active Substance: GLIMEPIRIDE
     Indication: DIABETES MELLITUS
     Dates: end: 2018
  7. JARDIANCE [Concomitant]
     Active Substance: EMPAGLIFLOZIN
     Indication: DIABETES MELLITUS
     Dates: end: 2018
  8. HYDRALAZINE [Concomitant]
     Active Substance: HYDRALAZINE HYDROCHLORIDE
     Indication: BLOOD PRESSURE MEASUREMENT
     Dates: end: 2018
  9. METFORMIN [Concomitant]
     Active Substance: METFORMIN HYDROCHLORIDE
     Indication: DIABETES MELLITUS
     Dates: end: 2018

REACTIONS (5)
  - Hypertension [Fatal]
  - Chronic kidney disease [Not Recovered/Not Resolved]
  - Squamous cell carcinoma of the tongue [Fatal]
  - Coronary artery disease [Fatal]
  - Diabetes mellitus [Fatal]
